FAERS Safety Report 16398973 (Version 1)
Quarter: 2019Q2

REPORT INFORMATION
  Report Type: Spontaneous
  Country: FR (occurrence: FR)
  Receive Date: 20190606
  Receipt Date: 20190606
  Transmission Date: 20190711
  Serious: Yes (Life-Threatening)
  Sender: FDA-Public Use
  Company Number: FR-MYLANLABS-2019M1053613

PATIENT
  Age: 11 Month
  Sex: Male
  Weight: 11 kg

DRUGS (4)
  1. NOYADA [Concomitant]
     Dosage: UNK
     Route: 048
  2. ALDACTONE [Concomitant]
     Active Substance: SPIRONOLACTONE
     Dosage: 20 MILLIGRAM, QD
     Route: 048
  3. BISOCE [Suspect]
     Active Substance: BISOPROLOL
     Indication: MYOCARDITIS
     Dosage: 2 MILLIGRAM, QD
     Route: 048
     Dates: start: 201810
  4. CORDARONE [Suspect]
     Active Substance: AMIODARONE HYDROCHLORIDE
     Indication: MYOCARDITIS
     Dosage: 140 MILLIGRAM, QD
     Route: 048
     Dates: start: 201806, end: 20181128

REACTIONS (1)
  - Atrioventricular block second degree [Recovered/Resolved]

NARRATIVE: CASE EVENT DATE: 20181127
